FAERS Safety Report 11456110 (Version 1)
Quarter: 2015Q3

REPORT INFORMATION
  Report Type: Spontaneous
  Country: JP (occurrence: JP)
  Receive Date: 20150903
  Receipt Date: 20150903
  Transmission Date: 20151125
  Serious: Yes (Other)
  Sender: FDA-Public Use
  Company Number: JP-BAYER-2015-410614

PATIENT
  Age: 62 Year
  Sex: Male

DRUGS (2)
  1. ASPIRIN ^BAYER^ (JP ASPIRIN) [Suspect]
     Active Substance: ASPIRIN
     Route: 048
  2. CLOPIDOGREL SULFATE [Interacting]
     Active Substance: CLOPIDOGREL BISULFATE
     Route: 048

REACTIONS (5)
  - Altered state of consciousness [None]
  - Cerebral haemorrhage [None]
  - Stroke in evolution [None]
  - Hemiplegia [None]
  - Labelled drug-drug interaction medication error [None]
